FAERS Safety Report 4378003-5 (Version None)
Quarter: 2004Q2

REPORT INFORMATION
  Report Type: 
  Country: None (occurrence: None)
  Receive Date: 20040608
  Receipt Date: 20040601
  Transmission Date: 20050107
  Serious: Yes (Disabling)
  Sender: FDA-Public Use
  Company Number: STA-AE-04-MTX-245

PATIENT
  Age: 12 Year
  Sex: Female

DRUGS (1)
  1. METHOTREXATE [Suspect]
     Indication: JUVENILE ARTHRITIS
     Dosage: 100 MG 1X PER 1 WK, ORAL
     Route: 048
     Dates: start: 19970101

REACTIONS (3)
  - AMNESIA [None]
  - HYPERSOMNIA [None]
  - LEARNING DISABILITY [None]
